FAERS Safety Report 9624915 (Version 1)
Quarter: 2013Q4

REPORT INFORMATION
  Report Type: Spontaneous
  Country: US (occurrence: US)
  Receive Date: 20131016
  Receipt Date: 20131016
  Transmission Date: 20140711
  Serious: Yes (Hospitalization)
  Sender: FDA-Public Use
  Company Number: US-BIOGENIDEC-2013BI098756

PATIENT
  Age: 52 Year
  Sex: Female

DRUGS (1)
  1. AVONEX [Suspect]
     Indication: MULTIPLE SCLEROSIS
     Route: 030
     Dates: start: 20050906

REACTIONS (7)
  - Brain neoplasm [Unknown]
  - Joint crepitation [Unknown]
  - Arthralgia [Unknown]
  - Injection site haemorrhage [Recovered/Resolved]
  - Post procedural complication [Not Recovered/Not Resolved]
  - Haemorrhagic cyst [Unknown]
  - Mobility decreased [Not Recovered/Not Resolved]
